FAERS Safety Report 20001067 (Version 1)
Quarter: 2021Q4

REPORT INFORMATION
  Report Type: Spontaneous
  Country: US (occurrence: US)
  Receive Date: 20211027
  Receipt Date: 20211027
  Transmission Date: 20220303
  Serious: No
  Sender: FDA-Public Use
  Company Number: US-JNJFOC-20211018449

PATIENT
  Age: 64 Year
  Sex: Female

DRUGS (2)
  1. TREMFYA [Suspect]
     Active Substance: GUSELKUMAB
     Indication: Product used for unknown indication
     Route: 058
     Dates: start: 20210204, end: 20210805
  2. TREMFYA [Suspect]
     Active Substance: GUSELKUMAB
     Route: 058
     Dates: start: 20211010

REACTIONS (2)
  - Off label use [Unknown]
  - Product use issue [Unknown]

NARRATIVE: CASE EVENT DATE: 20211010
